FAERS Safety Report 5911912-1 (Version None)
Quarter: 2008Q4

REPORT INFORMATION
  Report Type: 
  Country: None (occurrence: None)
  Receive Date: 20081008
  Receipt Date: 20080929
  Transmission Date: 20090506
  Serious: Yes (Other)
  Sender: FDA-Public Use
  Company Number: PHHY2008BR23294

PATIENT
  Sex: Male

DRUGS (2)
  1. RITALIN [Suspect]
     Dosage: 23 TABLETS
     Route: 048
     Dates: start: 20080929
  2. RISPERIDONE [Concomitant]
     Dosage: 3 TABLETS
     Dates: start: 20080929

REACTIONS (2)
  - INTENTIONAL OVERDOSE [None]
  - SUICIDE ATTEMPT [None]
